FAERS Safety Report 8073232-1 (Version None)
Quarter: 2012Q1

REPORT INFORMATION
  Report Type: 
  Country: None (occurrence: None)
  Receive Date: 20120120
  Receipt Date: 20120109
  Transmission Date: 20120608
  Serious: Yes (Death)
  Sender: FDA-Public Use
  Company Number: 2012MA000657

PATIENT
  Age: 38 Year
  Sex: Female

DRUGS (7)
  1. OXYCODONE HCL [Suspect]
  2. CYCLOBENZAPRINE [Concomitant]
  3. TOPIRAMATE [Suspect]
  4. DIPHENHYDRAMINE HCL [Concomitant]
  5. AMITRIPTYLINE HCL [Concomitant]
  6. ACETAMINOPHEN [Concomitant]
  7. HYDROMORPHONE HCL [Suspect]

REACTIONS (2)
  - TOXICITY TO VARIOUS AGENTS [None]
  - UNRESPONSIVE TO STIMULI [None]
